FAERS Safety Report 25008883 (Version 1)
Quarter: 2025Q1

REPORT INFORMATION
  Report Type: Spontaneous
  Country: US (occurrence: US)
  Receive Date: 20250225
  Receipt Date: 20250225
  Transmission Date: 20250408
  Serious: No
  Sender: AMGEN
  Company Number: US-AMGEN-USASP2025035213

PATIENT

DRUGS (1)
  1. REPATHA [Suspect]
     Active Substance: EVOLOCUMAB
     Indication: Blood cholesterol increased
     Route: 065

REACTIONS (2)
  - Back pain [Not Recovered/Not Resolved]
  - Mobility decreased [Unknown]
